FAERS Safety Report 4800868-0 (Version None)
Quarter: 2005Q4

REPORT INFORMATION
  Report Type: 
  Country: None (occurrence: None)
  Receive Date: 20051011
  Receipt Date: 20050926
  Transmission Date: 20060501
  Serious: Yes (Hospitalization)
  Sender: FDA-Public Use
  Company Number: 2005P1000464

PATIENT
  Age: 60 Year
  Sex: Male

DRUGS (7)
  1. RETEVASE [Suspect]
     Indication: ACUTE MYOCARDIAL INFARCTION
     Dosage: IV
     Route: 042
     Dates: start: 20041101, end: 20041101
  2. ABCIXIMAB (ABCIXIMAB) [Suspect]
     Indication: ACUTE MYOCARDIAL INFARCTION
     Dosage: IV
     Route: 042
     Dates: start: 20051101, end: 20051101
  3. ASPIRIN [Concomitant]
  4. ISOSORBIDE MONONITRATE [Concomitant]
  5. ENALAPRIL [Concomitant]
  6. SIMVASTATIN [Concomitant]
  7. TICLOPIDINE HCL [Concomitant]

REACTIONS (2)
  - BRONCHITIS [None]
  - LUNG NEOPLASM [None]
